FAERS Safety Report 24551608 (Version 1)
Quarter: 2024Q4

REPORT INFORMATION
  Report Type: Report from Study
  Country: US (occurrence: US)
  Receive Date: 20241026
  Receipt Date: 20241026
  Transmission Date: 20250115
  Serious: Yes (Hospitalization)
  Sender: ABBVIE
  Company Number: US-ABBVIE-5939576

PATIENT
  Sex: Male

DRUGS (4)
  1. HUMIRA [Suspect]
     Active Substance: ADALIMUMAB
     Indication: Colitis ulcerative
     Dosage: CITRATE FREE, LAST ADMIN DATE: 2024
     Route: 058
     Dates: start: 20240815
  2. HUMIRA [Suspect]
     Active Substance: ADALIMUMAB
     Dosage: INCREASED DOSE, CITRATE FREE
     Route: 058
     Dates: start: 2024
  3. PREDNISONE [Concomitant]
     Active Substance: PREDNISONE
     Indication: Product used for unknown indication
  4. PREDNISONE [Concomitant]
     Active Substance: PREDNISONE
     Indication: Product used for unknown indication
     Dosage: ADDED BACK ON PREDNISONE
     Dates: start: 2024

REACTIONS (6)
  - Diarrhoea [Recovering/Resolving]
  - Haematochezia [Recovering/Resolving]
  - Abdominal distension [Recovering/Resolving]
  - Abdominal pain upper [Recovering/Resolving]
  - Clostridium difficile infection [Recovering/Resolving]
  - Pyrexia [Recovering/Resolving]

NARRATIVE: CASE EVENT DATE: 20240101
